FAERS Safety Report 5938619-9 (Version None)
Quarter: 2008Q4

REPORT INFORMATION
  Report Type: 
  Country: None (occurrence: None)
  Receive Date: 20081103
  Receipt Date: 20081023
  Transmission Date: 20090506
  Serious: Yes (Other)
  Sender: FDA-Public Use
  Company Number: JP-WYE-H06591808

PATIENT
  Age: 53 Year
  Sex: Female

DRUGS (1)
  1. HYPEN [Suspect]
     Dosage: UNSPECIFIED
     Route: 048
     Dates: start: 20060701, end: 20060701

REACTIONS (2)
  - LIVER DISORDER [None]
  - RASH MACULAR [None]
